FAERS Safety Report 8858444 (Version 5)
Quarter: 2014Q3

REPORT INFORMATION
  Report Type: Spontaneous
  Country: US (occurrence: US)
  Receive Date: 20121024
  Receipt Date: 20140917
  Transmission Date: 20150326
  Serious: Yes (Hospitalization, Other)
  Sender: FDA-Public Use
  Company Number: US-009507513-1202USA04369

PATIENT
  Sex: Female
  Weight: 85.26 kg

DRUGS (7)
  1. FOSAMAX [Suspect]
     Active Substance: ALENDRONATE SODIUM
     Indication: OSTEOPENIA
     Dosage: UNK
     Route: 048
     Dates: start: 199806
  2. FOSAMAX [Suspect]
     Active Substance: ALENDRONATE SODIUM
     Indication: OSTEOPOROSIS
     Dosage: 70 MG, QW
     Route: 048
     Dates: end: 200706
  3. DETROL LA [Concomitant]
     Active Substance: TOLTERODINE TARTRATE
     Indication: BLADDER DISORDER
     Dosage: UNK
     Dates: start: 1980
  4. BONIVA [Suspect]
     Active Substance: IBANDRONATE SODIUM
     Indication: OSTEOPENIA
  5. SYNTHROID [Concomitant]
     Active Substance: LEVOTHYROXINE SODIUM
     Indication: HYPOTHYROIDISM
     Dosage: UNK
     Dates: start: 1980
  6. ATENOLOL. [Concomitant]
     Active Substance: ATENOLOL
     Indication: HYPERTENSION
     Dosage: UNK
     Dates: start: 1999, end: 2011
  7. BONIVA [Suspect]
     Active Substance: IBANDRONATE SODIUM
     Indication: OSTEOPOROSIS
     Dosage: 150 MG, QM
     Route: 048
     Dates: start: 200707, end: 20101227

REACTIONS (31)
  - Cholecystectomy [Unknown]
  - Vitamin D deficiency [Unknown]
  - Gastrooesophageal reflux disease [Not Recovered/Not Resolved]
  - Low turnover osteopathy [Unknown]
  - Foot fracture [Unknown]
  - Spinal osteoarthritis [Unknown]
  - Dyslipidaemia [Unknown]
  - Drug ineffective [Unknown]
  - Dizziness [Unknown]
  - Influenza [Unknown]
  - Femur fracture [Unknown]
  - Hypotension [Unknown]
  - Bone disorder [Unknown]
  - Adverse drug reaction [Unknown]
  - Coagulation test abnormal [Unknown]
  - Coagulopathy [Unknown]
  - Viral infection [Unknown]
  - Depression [Unknown]
  - Pruritus [Unknown]
  - Hyperlipidaemia [Unknown]
  - Osteoarthritis [Unknown]
  - Oedema peripheral [Unknown]
  - Hysterectomy [Unknown]
  - Back pain [Unknown]
  - Sciatica [Unknown]
  - Stress urinary incontinence [Unknown]
  - Intramedullary rod insertion [Unknown]
  - Pulmonary embolism [Unknown]
  - Costochondritis [Unknown]
  - Pain [Unknown]
  - Contrast media allergy [Unknown]

NARRATIVE: CASE EVENT DATE: 1999
